FAERS Safety Report 5980470-8 (Version None)
Quarter: 2008Q4

REPORT INFORMATION
  Report Type: 
  Country: None (occurrence: None)
  Receive Date: 20081205
  Receipt Date: 20080102
  Transmission Date: 20090506
  Serious: No
  Sender: FDA-Public Use
  Company Number: A0700929A

PATIENT
  Age: 50 Year
  Sex: Female

DRUGS (3)
  1. COMMIT [Suspect]
  2. COMMIT [Suspect]
  3. COMMIT [Suspect]

REACTIONS (4)
  - CRYING [None]
  - HYPOAESTHESIA FACIAL [None]
  - INTENTIONAL DRUG MISUSE [None]
  - MALAISE [None]
